FAERS Safety Report 9527551 (Version 1)
Quarter: 2013Q1

REPORT INFORMATION
  Report Type: Spontaneous
  Country: US (occurrence: None)
  Receive Date: 20130314
  Receipt Date: 20130314
  Transmission Date: 20140127
  Serious: No
  Sender: FDA-Public Use
  Company Number: 1211USA003356

PATIENT
  Age: 62 Year
  Sex: Male

DRUGS (3)
  1. PEGINTRON (PEGINTERFERON ALFA-2B) POWDER FOR INJECTION [Suspect]
     Indication: HEPATITIS C
     Dates: start: 20121103
  2. RIBAVIRIN (RIBAVIRIN) CAPSULE [Suspect]
     Indication: HEPATITIS C
     Dates: start: 20121103
  3. VICTRELIS (BOCEPREVIR) CAPSULE [Suspect]
     Indication: HEPATITIS C
     Dates: start: 20121202

REACTIONS (14)
  - Back pain [None]
  - Fatigue [None]
  - Decreased appetite [None]
  - Dehydration [None]
  - Rash [None]
  - Pruritus [None]
  - Social avoidant behaviour [None]
  - Lethargy [None]
  - Asthenia [None]
  - Hypotonia [None]
  - Weight decreased [None]
  - Headache [None]
  - Nervous system disorder [None]
  - Dizziness [None]
